FAERS Safety Report 5248887-7 (Version None)
Quarter: 2007Q1

REPORT INFORMATION
  Report Type: 
  Country: None (occurrence: None)
  Receive Date: 20070228
  Receipt Date: 20060405
  Transmission Date: 20070707
  Serious: No
  Sender: FDA-Public Use
  Company Number: US-GLAXOSMITHKLINE-A0600554A

PATIENT
  Age: 41 Year
  Sex: Female

DRUGS (1)
  1. VALTREX [Suspect]
     Dosage: 450MG TWICE PER DAY
     Route: 048
     Dates: start: 20060120, end: 20060127

REACTIONS (1)
  - RASH [None]
